FAERS Safety Report 8530677-0 (Version None)
Quarter: 2012Q3

REPORT INFORMATION
  Report Type: 
  Country: None (occurrence: None)
  Receive Date: 20120723
  Receipt Date: 20120712
  Transmission Date: 20120928
  Serious: Yes (Other)
  Sender: FDA-Public Use
  Company Number: US-ASTRAZENECA-2011SE09493

PATIENT
  Age: 47 Year
  Sex: Female
  Weight: 72.6 kg

DRUGS (5)
  1. NEURONTIN [Concomitant]
  2. SEROQUEL [Suspect]
     Route: 048
     Dates: start: 20020101
  3. SEROQUEL [Suspect]
     Indication: SLEEP DISORDER
     Route: 048
     Dates: start: 20010101
  4. LEXAPRO [Concomitant]
  5. KLONOPIN [Concomitant]

REACTIONS (7)
  - JOINT INJURY [None]
  - MENISCUS LESION [None]
  - BRONCHITIS [None]
  - MALAISE [None]
  - ACCIDENT AT WORK [None]
  - MUSCULOSKELETAL DISCOMFORT [None]
  - OFF LABEL USE [None]
